FAERS Safety Report 9709675 (Version 5)
Quarter: 2013Q4

REPORT INFORMATION
  Report Type: Report from Study
  Country: BE (occurrence: BE)
  Receive Date: 20131126
  Receipt Date: 20131219
  Transmission Date: 20140711
  Serious: No
  Sender: FDA-Public Use
  Company Number: BE-JNJFOC-20130912207

PATIENT
  Sex: Female
  Weight: 65 kg

DRUGS (3)
  1. TMC114 [Suspect]
     Indication: HIV INFECTION
     Route: 048
     Dates: start: 20110317
  2. TRUVADA [Suspect]
     Indication: HIV INFECTION
     Dosage: 200/245 (UNITS UNSPECIFIED)
     Route: 065
     Dates: start: 20110317
  3. RITONAVIR [Suspect]
     Indication: HIV INFECTION
     Route: 065
     Dates: start: 20110317

REACTIONS (1)
  - Exposure during pregnancy [Recovered/Resolved]
